FAERS Safety Report 4609763-3 (Version None)
Quarter: 2005Q1

REPORT INFORMATION
  Report Type: 
  Country: None (occurrence: None)
  Receive Date: 20050314
  Receipt Date: 20050301
  Transmission Date: 20050727
  Serious: No
  Sender: FDA-Public Use
  Company Number: 2004-121813-NL

PATIENT
  Age: 29 Year
  Sex: Female

DRUGS (3)
  1. FOLLITROPIN BETA [Suspect]
     Indication: BLOOD FOLLICLE STIMULATING HORMONE
     Dosage: 125 IU QD; SUBCUTANEOUS
     Route: 059
     Dates: start: 20040805, end: 20040806
  2. DOXYCYCLINE [Concomitant]
  3. BUSERELIN ACETATE [Concomitant]

REACTIONS (8)
  - ABDOMINAL DISTENSION [None]
  - ARTHRITIS [None]
  - CHILLS [None]
  - FATIGUE [None]
  - FEELING HOT AND COLD [None]
  - HEADACHE [None]
  - INJECTION SITE PAIN [None]
  - NAUSEA [None]
